FAERS Safety Report 7483770-8 (Version None)
Quarter: 2011Q2

REPORT INFORMATION
  Report Type: 
  Country: None (occurrence: None)
  Receive Date: 20110517
  Receipt Date: 20110511
  Transmission Date: 20111010
  Serious: Yes (Death, Hospitalization)
  Sender: FDA-Public Use
  Company Number: PHHY2011TW38276

PATIENT
  Sex: Male

DRUGS (1)
  1. EXJADE [Suspect]
     Indication: IRON OVERLOAD
     Dosage: 1750 MG, DAY
     Route: 048
     Dates: start: 20101021, end: 20110415

REACTIONS (11)
  - CARDIAC ARREST [None]
  - CARDIAC FAILURE [None]
  - VASCULITIS [None]
  - PROTEINURIA [None]
  - URINARY TRACT INFECTION [None]
  - PYREXIA [None]
  - ALTERED STATE OF CONSCIOUSNESS [None]
  - FANCONI SYNDROME ACQUIRED [None]
  - PYURIA [None]
  - DYSPNOEA [None]
  - WHEEZING [None]
